FAERS Safety Report 4462796-2 (Version None)
Quarter: 2004Q3

REPORT INFORMATION
  Report Type: 
  Country: None (occurrence: None)
  Receive Date: 20040927
  Receipt Date: 20040727
  Transmission Date: 20050211
  Serious: Yes (Other)
  Sender: FDA-Public Use
  Company Number: 2004051408

PATIENT
  Sex: Female
  Weight: 64.4108 kg

DRUGS (6)
  1. NEURONTIN [Suspect]
     Indication: BRACHIAL PLEXUS INJURY
     Dosage: 3000 MG (300 MG), ORAL
     Route: 048
     Dates: start: 20020101
  2. CLONAZEPAM [Suspect]
     Indication: ILL-DEFINED DISORDER
     Dosage: 3 MG, ORAL
     Route: 048
  3. OXYCODONE HCL [Suspect]
     Indication: PAIN
     Dosage: 60 MG, ORAL
     Route: 048
  4. VENLAFAXINE HCL [Suspect]
     Indication: ILL-DEFINED DISORDER
     Dosage: 375 MG, ORAL
     Route: 048
  5. QUETIAPINE FUMARATE (QUETIAPINE FUMARATE) [Concomitant]
  6. VALSARTAN (VALSARTAN) [Concomitant]

REACTIONS (8)
  - BLADDER DISORDER [None]
  - CONSTIPATION [None]
  - FAECALOMA [None]
  - NEOPLASM [None]
  - RENAL CYST [None]
  - URINARY RETENTION [None]
  - URINARY TRACT INFECTION [None]
  - X-RAY ABNORMAL [None]
